FAERS Safety Report 7371024-X (Version None)
Quarter: 2011Q1

REPORT INFORMATION
  Report Type: 
  Country: None (occurrence: None)
  Receive Date: 20110321
  Receipt Date: 20110321
  Transmission Date: 20110831
  Serious: Yes (Other)
  Sender: FDA-Public Use
  Company Number: None

PATIENT
  Sex: Female
  Weight: 52.6173 kg

DRUGS (1)
  1. BONIVA [Suspect]
     Indication: OSTEOPOROSIS
     Dosage: 1 PILL MONTHLY
     Dates: start: 20060605, end: 20070710

REACTIONS (6)
  - DENTAL CARIES [None]
  - TOOTH FRACTURE [None]
  - DYSGEUSIA [None]
  - BREATH ODOUR [None]
  - TOOTH LOSS [None]
  - GINGIVAL DISORDER [None]
